FAERS Safety Report 7485675-5 (Version None)
Quarter: 2011Q2

REPORT INFORMATION
  Report Type: 
  Country: None (occurrence: None)
  Receive Date: 20110517
  Receipt Date: 20100625
  Transmission Date: 20111010
  Serious: No
  Sender: FDA-Public Use
  Company Number: US-PFIZER INC-2010074828

PATIENT
  Age: 68 Year
  Sex: Female

DRUGS (1)
  1. ESTROPIPATE [Suspect]
     Dosage: UNK

REACTIONS (3)
  - EMOTIONAL DISTRESS [None]
  - DRUG INEFFECTIVE [None]
  - ABDOMINAL DISTENSION [None]
